FAERS Safety Report 4509428-2 (Version None)
Quarter: 2004Q4

REPORT INFORMATION
  Report Type: 
  Country: None (occurrence: None)
  Receive Date: 20041025
  Receipt Date: 20040625
  Transmission Date: 20050328
  Serious: Yes (Hospitalization)
  Sender: FDA-Public Use
  Company Number: US-JNJFOC-20040608160

PATIENT
  Age: 73 Year
  Sex: Male
  Weight: 88.4514 kg

DRUGS (5)
  1. INFLIXIMAB (INFLIXIMAB, RECOMBINANT) LYOPHILIZED POWDER [Suspect]
     Indication: CROHN'S DISEASE
     Dosage: 5 MG/KG, INTRAVENOUS
     Route: 042
     Dates: start: 20020814
  2. BUDENOSIDE [Concomitant]
  3. MERCAPTOPURINE [Concomitant]
  4. MESALAMINE [Concomitant]
  5. PREDNISONE [Concomitant]

REACTIONS (1)
  - CHEST PAIN [None]
